FAERS Safety Report 7002485-3 (Version None)
Quarter: 2010Q3

REPORT INFORMATION
  Report Type: 
  Country: None (occurrence: None)
  Receive Date: 20100920
  Receipt Date: 20100517
  Transmission Date: 20110219
  Serious: Yes (Other)
  Sender: FDA-Public Use
  Company Number: US-ASTRAZENECA-2007UW08922

PATIENT
  Sex: Male

DRUGS (3)
  1. SEROQUEL [Suspect]
     Dosage: 25 MG, THREE TIMES A DAY, 100 MG 1 TABLET AT BEDTIME
     Route: 048
     Dates: start: 20050816
  2. LYRICA [Concomitant]
     Dates: start: 20060925
  3. TOFRANIL [Concomitant]
     Dates: start: 20050816

REACTIONS (3)
  - DIABETIC NEUROPATHY [None]
  - ERECTILE DYSFUNCTION [None]
  - TYPE 2 DIABETES MELLITUS [None]
